FAERS Safety Report 7018808-5 (Version None)
Quarter: 2010Q3

REPORT INFORMATION
  Report Type: 
  Country: None (occurrence: None)
  Receive Date: 20100928
  Receipt Date: 20100916
  Transmission Date: 20110219
  Serious: Yes (Other)
  Sender: FDA-Public Use
  Company Number: US-PFIZER INC-2010114528

PATIENT
  Sex: Female
  Weight: 56.6 kg

DRUGS (23)
  1. ZITHROMAX [Suspect]
     Indication: LOWER RESPIRATORY TRACT INFECTION BACTERIAL
     Dosage: 250 MG, 1X/DAY
     Dates: start: 20080801
  2. ZITHROMAX [Suspect]
     Dosage: 250 MG, 1X/DAY
     Dates: start: 20090301, end: 20090501
  3. ZITHROMAX [Suspect]
     Dosage: 250 MG, 1X/DAY
     Dates: start: 20090101, end: 20090901
  4. ZITHROMAX [Suspect]
     Dosage: 250 MG, 1X/DAY
     Dates: start: 20100901
  5. MYCOBUTIN [Suspect]
     Indication: MYCOBACTERIUM AVIUM COMPLEX INFECTION
     Dosage: 300 MG, 1X/DAY
     Dates: start: 20080101
  6. MYCOBUTIN [Suspect]
     Dosage: UNK, 3X/WEEK
     Dates: start: 20090301, end: 20090501
  7. MYCOBUTIN [Suspect]
     Dosage: UNK
     Dates: start: 20090101, end: 20090901
  8. MYCOBUTIN [Suspect]
     Dosage: 150 MG, 2X/DAY
     Dates: start: 20100907
  9. MYAMBUTOL [Suspect]
     Indication: MYCOBACTERIUM AVIUM COMPLEX INFECTION
     Dosage: 800 MG, UNK
     Dates: start: 20080801
  10. MYAMBUTOL [Suspect]
     Dosage: UNK, DOSE REDUCED
     Dates: start: 20090301, end: 20090501
  11. MYAMBUTOL [Suspect]
     Dosage: 800 MG, DAILY
     Dates: start: 20090101, end: 20090901
  12. MYAMBUTOL [Suspect]
     Dosage: 400 MG, 2X/DAY
     Dates: start: 20100907
  13. RIFAMPIN [Concomitant]
     Indication: MYCOBACTERIUM AVIUM COMPLEX INFECTION
     Dosage: UNK
  14. RIFAMPIN [Concomitant]
     Dates: start: 20080801
  15. CLIMARA [Concomitant]
     Dosage: 0.1 MG, UNK
     Route: 061
  16. FOLATE [Concomitant]
     Dosage: UNK
  17. CALCIUM [Concomitant]
  18. MAGNESIUM [Concomitant]
     Dosage: FREQUENCY: 3X/DAILY,
  19. VITAMIN E [Concomitant]
     Dosage: 400 MG, UNK
  20. VITAMIN D3 [Concomitant]
  21. ASCORBIC ACID [Concomitant]
     Dosage: 500 MG, 1X/DAY
  22. ULTRASE MT20 [Concomitant]
     Dosage: 40 MG, UNK
  23. BENADRYL [Concomitant]
     Indication: PROPHYLAXIS
     Dosage: 25 MG, UNK

REACTIONS (7)
  - ATYPICAL MYCOBACTERIUM TEST POSITIVE [None]
  - BRONCHITIS [None]
  - CHOKING [None]
  - COUGH [None]
  - LOWER RESPIRATORY TRACT INFECTION BACTERIAL [None]
  - NOCARDIOSIS [None]
  - SPUTUM DISCOLOURED [None]
